FAERS Safety Report 24696503 (Version 1)
Quarter: 2024Q4

REPORT INFORMATION
  Report Type: Spontaneous
  Country: US (occurrence: US)
  Receive Date: 20241204
  Receipt Date: 20241204
  Transmission Date: 20250115
  Serious: No
  Sender: ABBVIE
  Company Number: US-ABBVIE-6025568

PATIENT
  Sex: Male

DRUGS (1)
  1. HUMIRA [Suspect]
     Active Substance: ADALIMUMAB
     Indication: Ankylosing spondylitis
     Dosage: DOSAGE: 40MG/0.4ML, FORM STRENGTH:40 MILLIGRAM.
     Route: 058

REACTIONS (1)
  - Drug ineffective [Not Recovered/Not Resolved]
